FAERS Safety Report 4660736-4 (Version None)
Quarter: 2005Q2

REPORT INFORMATION
  Report Type: 
  Country: None (occurrence: None)
  Receive Date: 20050511
  Receipt Date: 20050428
  Transmission Date: 20051028
  Serious: Yes (Hospitalization, Other)
  Sender: FDA-Public Use
  Company Number: 2005068211

PATIENT
  Age: 86 Year
  Sex: Male

DRUGS (13)
  1. NEURONTIN [Suspect]
     Indication: NEURALGIA
     Dosage: 900 MG (300MG, 3 IN 1 D), ORAL
     Route: 048
     Dates: start: 20000101
  2. GABAPENTIN [Suspect]
     Indication: NEURALGIA
     Dosage: 1800 MG (600 MG, 3 IN 1 D), ORAL
     Route: 048
     Dates: start: 20050425
  3. BEXTRA [Suspect]
     Indication: ILL-DEFINED DISORDER
  4. METHADONE HCL [Suspect]
     Indication: NEURALGIA
     Dates: start: 20050101, end: 20050101
  5. ISOSORBIDE (ISOSORBIDE) [Concomitant]
  6. LISINOPRIL [Concomitant]
  7. FUROSEMIDE [Concomitant]
  8. POTASSIUM ACETATE [Concomitant]
  9. WARFARIN SODIUM [Concomitant]
  10. TERAZOSIN (TERAZOSIN) [Concomitant]
  11. NIFEDIPINE [Concomitant]
  12. ALL OTHER THERAPEUTIC PRODUCTS (ALL OTHER THERAPEUTIC PRODUCTS) [Concomitant]
  13. SIMVASTATIN [Concomitant]

REACTIONS (8)
  - CARDIAC PACEMAKER INSERTION [None]
  - DYSPEPSIA [None]
  - EATING DISORDER [None]
  - FLATULENCE [None]
  - MALAISE [None]
  - NEURALGIA [None]
  - PHARMACEUTICAL PRODUCT COMPLAINT [None]
  - WEIGHT DECREASED [None]
